FAERS Safety Report 19987503 (Version 3)
Quarter: 2021Q4

REPORT INFORMATION
  Report Type: Report from Study
  Country: AR (occurrence: AR)
  Receive Date: 20211023
  Receipt Date: 20211221
  Transmission Date: 20220303
  Serious: Yes (Other)
  Sender: FDA-Public Use
  Company Number: AR-ABBVIE-21K-007-4131319-00

PATIENT
  Age: 77 Year
  Sex: Female

DRUGS (1)
  1. HUMIRA [Suspect]
     Active Substance: ADALIMUMAB
     Indication: Rheumatoid arthritis
     Route: 058
     Dates: start: 20180725

REACTIONS (6)
  - Haemorrhage [Unknown]
  - Haemorrhoids [Not Recovered/Not Resolved]
  - Gait disturbance [Recovering/Resolving]
  - Decreased appetite [Not Recovered/Not Resolved]
  - Iron deficiency anaemia [Recovering/Resolving]
  - Fall [Recovering/Resolving]

NARRATIVE: CASE EVENT DATE: 20211001
